FAERS Safety Report 6689743-7 (Version None)
Quarter: 2010Q2

REPORT INFORMATION
  Report Type: 
  Country: None (occurrence: None)
  Receive Date: 20100421
  Receipt Date: 20100412
  Transmission Date: 20101027
  Serious: Yes (Hospitalization, Other)
  Sender: FDA-Public Use
  Company Number: US-JNJFOC-20100403355

PATIENT
  Sex: Female
  Weight: 59.42 kg

DRUGS (3)
  1. LEVAQUIN [Suspect]
     Indication: INFECTION
     Route: 048
  2. LEVAQUIN [Suspect]
     Route: 048
  3. LEVAQUIN [Suspect]
     Route: 048

REACTIONS (6)
  - ABNORMAL LOSS OF WEIGHT [None]
  - HERPES ZOSTER [None]
  - INFECTION [None]
  - MUSCULOSKELETAL DISORDER [None]
  - PAIN IN EXTREMITY [None]
  - SKIN LESION [None]
